FAERS Safety Report 12381838 (Version 2)
Quarter: 2016Q2

REPORT INFORMATION
  Report Type: Spontaneous
  Country: US (occurrence: US)
  Receive Date: 20160518
  Receipt Date: 20160606
  Transmission Date: 20160815
  Serious: Yes (Hospitalization, Other)
  Sender: FDA-Public Use
  Company Number: US-SMITH AND NEPHEW, INC-2016SMT00405

PATIENT
  Age: 55 Year
  Sex: Female
  Weight: 106.58 kg

DRUGS (9)
  1. METOPROLOL. [Concomitant]
     Active Substance: METOPROLOL
     Dosage: 100 MG, 2X/DAY
  2. REGRANEX [Suspect]
     Active Substance: BECAPLERMIN
     Dosage: UNK UNK, 1X/DAY
     Route: 061
     Dates: start: 201604, end: 20160428
  3. SPIRONOLACTONE. [Concomitant]
     Active Substance: SPIRONOLACTONE
     Dosage: 1 TABLETS, 1X/DAY
  4. TORSEMIDE. [Concomitant]
     Active Substance: TORSEMIDE
     Dosage: 20 MG, 1X/DAY
  5. LEVEMIR [Concomitant]
     Active Substance: INSULIN DETEMIR
     Dosage: 50 U, 1X/DAY
  6. PLAVIX [Concomitant]
     Active Substance: CLOPIDOGREL BISULFATE
     Dosage: 75 MG, 1X/DAY
  7. NOVOLOG [Concomitant]
     Active Substance: INSULIN ASPART
     Dosage: 15 U, 3X/DAY
  8. UNSPECIFIED HEART MEDICATION [Concomitant]
     Active Substance: UNSPECIFIED INGREDIENT
  9. GABAPENTIN. [Concomitant]
     Active Substance: GABAPENTIN
     Dosage: 600 MG, 3X/DAY

REACTIONS (7)
  - Joint dislocation [Unknown]
  - Foot fracture [Unknown]
  - Acute kidney injury [Unknown]
  - Fall [Unknown]
  - Gastrooesophageal reflux disease [Unknown]
  - Arthropathy [Unknown]
  - Coronary artery disease [Unknown]

NARRATIVE: CASE EVENT DATE: 20160428
